FAERS Safety Report 17058220 (Version 1)
Quarter: 2019Q4

REPORT INFORMATION
  Report Type: Other
  Country: CN (occurrence: CN)
  Receive Date: 20191121
  Receipt Date: 20191121
  Transmission Date: 20200122
  Serious: Yes (Hospitalization)
  Sender: FDA-Public Use
  Company Number: CN-GE HEALTHCARE LIFE SCIENCES-2019CSU005848

PATIENT

DRUGS (5)
  1. VISIPAQUE [Suspect]
     Active Substance: IODIXANOL
     Indication: ANGIOGRAM
     Dosage: 200 ML, SINGLE
     Route: 013
     Dates: start: 20191025, end: 20191025
  2. VISIPAQUE [Suspect]
     Active Substance: IODIXANOL
     Indication: INTRA-AORTIC BALLOON PLACEMENT
  3. VISIPAQUE [Suspect]
     Active Substance: IODIXANOL
     Indication: ARTERIAL STENT INSERTION
  4. VISIPAQUE [Suspect]
     Active Substance: IODIXANOL
     Indication: ARTERIOSCLEROSIS
  5. VISIPAQUE [Suspect]
     Active Substance: IODIXANOL
     Indication: CEREBRAL INFARCTION

REACTIONS (1)
  - Erythema multiforme [Recovering/Resolving]

NARRATIVE: CASE EVENT DATE: 20191026
